FAERS Safety Report 24144046 (Version 2)
Quarter: 2024Q3

REPORT INFORMATION
  Report Type: Spontaneous
  Country: US (occurrence: US)
  Receive Date: 20240727
  Receipt Date: 20240809
  Transmission Date: 20241016
  Serious: Yes (Hospitalization)
  Sender: TEVA
  Company Number: US-TEVA-VS-3222856

PATIENT
  Age: 54 Year
  Sex: Female

DRUGS (7)
  1. OXYCODONE [Suspect]
     Active Substance: OXYCODONE
     Indication: Suicide attempt
     Dosage: INGESTED 5 TABLETS
     Route: 048
  2. SERTRALINE [Concomitant]
     Active Substance: SERTRALINE HYDROCHLORIDE
     Indication: Product used for unknown indication
     Route: 065
  3. LITHIUM [Interacting]
     Active Substance: LITHIUM
     Indication: Suicide attempt
     Dosage: INGESTED 180 TABLETS
     Route: 048
  4. RISPERIDONE [Concomitant]
     Active Substance: RISPERIDONE
     Indication: Product used for unknown indication
     Route: 065
  5. QUETIAPINE [Concomitant]
     Active Substance: QUETIAPINE
     Indication: Product used for unknown indication
     Dosage: AT NIGHT
     Route: 065
  6. LAMOTRIGINE [Concomitant]
     Active Substance: LAMOTRIGINE
     Indication: Product used for unknown indication
     Route: 065
  7. ACYCLOVIR [Interacting]
     Active Substance: ACYCLOVIR
     Indication: Suicide attempt
     Dosage: INGESTED 20 TABLETS
     Route: 048

REACTIONS (3)
  - Toxicity to various agents [Recovered/Resolved]
  - Intentional overdose [Unknown]
  - Drug interaction [Unknown]
